FAERS Safety Report 19432730 (Version 17)
Quarter: 2023Q2

REPORT INFORMATION
  Report Type: Report from Study
  Country: CA (occurrence: CA)
  Receive Date: 20210617
  Receipt Date: 20230620
  Transmission Date: 20230721
  Serious: Yes (Hospitalization, Other)
  Sender: FDA-Public Use
  Company Number: CA-OTSUKA-2021_020118

PATIENT
  Age: 83 Year
  Sex: Male

DRUGS (5)
  1. CEDAZURIDINE\DECITABINE [Suspect]
     Active Substance: CEDAZURIDINE\DECITABINE
     Indication: Myelodysplastic syndrome
     Dosage: (35 MG OF DECITABINE AND 100 MG OF CEDAZURIDINE)
     Route: 065
     Dates: start: 20210218
  2. CEDAZURIDINE\DECITABINE [Suspect]
     Active Substance: CEDAZURIDINE\DECITABINE
     Dosage: (35 MG OF DECITABINE AND 100 MG OF CEDAZURIDINE), QD (4/28)
     Route: 065
  3. CEDAZURIDINE\DECITABINE [Suspect]
     Active Substance: CEDAZURIDINE\DECITABINE
     Dosage: (35 MG OF DECITABINE AND 100 MG OF CEDAZURIDINE), QD (4/35)
     Route: 065
  4. CEDAZURIDINE\DECITABINE [Suspect]
     Active Substance: CEDAZURIDINE\DECITABINE
     Dosage: (35 MG OF DECITABINE AND 100 MG OF CEDAZURIDINE), QD (5/28)
     Route: 065
  5. CEDAZURIDINE\DECITABINE [Suspect]
     Active Substance: CEDAZURIDINE\DECITABINE
     Dosage: (35 MG OF DECITABINE AND 100 MG OF CEDAZURIDINE), QD (3/35)
     Route: 065

REACTIONS (13)
  - Transfusion [Recovered/Resolved]
  - Blood product transfusion dependent [Unknown]
  - Haematochezia [Unknown]
  - Haemoglobin decreased [Unknown]
  - Platelet count decreased [Unknown]
  - Eastern Cooperative Oncology Group performance status worsened [Unknown]
  - Gastric mucosal lesion [Unknown]
  - Feeling abnormal [Unknown]
  - Blood urine present [Unknown]
  - General physical health deterioration [Unknown]
  - Fatigue [Unknown]
  - Inappropriate schedule of product administration [Unknown]
  - Inappropriate schedule of product administration [Unknown]

NARRATIVE: CASE EVENT DATE: 20220201
